FAERS Safety Report 6093712-8 (Version None)
Quarter: 2009Q1

REPORT INFORMATION
  Report Type: 
  Country: None (occurrence: None)
  Receive Date: 20090226
  Receipt Date: 20090218
  Transmission Date: 20090719
  Serious: Yes (Hospitalization)
  Sender: FDA-Public Use
  Company Number: US-AMGEN-QUU334530

PATIENT
  Sex: Female

DRUGS (3)
  1. ENBREL [Suspect]
     Indication: ANKYLOSING SPONDYLITIS
     Route: 058
     Dates: start: 20070116
  2. REMICADE [Concomitant]
  3. METHOTREXATE [Concomitant]

REACTIONS (11)
  - ANKYLOSING SPONDYLITIS [None]
  - CYST REMOVAL [None]
  - FLUSHING [None]
  - HEADACHE [None]
  - HOT FLUSH [None]
  - INFLUENZA LIKE ILLNESS [None]
  - LIMB OPERATION [None]
  - MALAISE [None]
  - NAUSEA [None]
  - OSTEOARTHRITIS [None]
  - PYREXIA [None]
